FAERS Safety Report 13678679 (Version 1)
Quarter: 2017Q2

REPORT INFORMATION
  Report Type: Spontaneous
  Country: US (occurrence: US)
  Receive Date: 20170622
  Receipt Date: 20170622
  Transmission Date: 20170830
  Serious: No
  Sender: FDA-Public Use
  Company Number: US-SA-2017SA001950

PATIENT
  Age: 50 Year
  Sex: Female
  Weight: 65.23 kg

DRUGS (6)
  1. CEREZYME [Suspect]
     Active Substance: IMIGLUCERASE
     Indication: GAUCHER^S DISEASE
     Route: 041
     Dates: start: 20160202, end: 20161228
  2. EFFEXOR XR [Concomitant]
     Active Substance: VENLAFAXINE HYDROCHLORIDE
     Dosage: DOSE: 37.5
  3. MOBIC [Concomitant]
     Active Substance: MELOXICAM
  4. BISACODYL. [Concomitant]
     Active Substance: BISACODYL
  5. GINSENG NOS [Concomitant]
     Active Substance: HERBALS
     Dosage: DOSE: 1000
  6. OMEPRAZOLE. [Concomitant]
     Active Substance: OMEPRAZOLE

REACTIONS (4)
  - Swollen tongue [Unknown]
  - Dyspnoea [Unknown]
  - Back pain [Unknown]
  - Chest pain [Unknown]

NARRATIVE: CASE EVENT DATE: 20161207
